FAERS Safety Report 8475337-X (Version None)
Quarter: 2012Q2

REPORT INFORMATION
  Report Type: 
  Country: None (occurrence: None)
  Receive Date: 20120628
  Receipt Date: 20120626
  Transmission Date: 20120825
  Serious: Yes (Other)
  Sender: FDA-Public Use
  Company Number: JP-JNJFOC-20120609357

PATIENT

DRUGS (4)
  1. BORTEZOMIB [Suspect]
     Indication: MULTIPLE MYELOMA
     Dosage: DAYS 1, 4, 8 AND 11 (1 MG/ M2 IN COHORT 1 AND 1.3 MG/ M2 IN COHORT 2)
     Route: 042
  2. DEXAMETHASONE [Suspect]
     Indication: MULTIPLE MYELOMA
     Dosage: DAYS 1-2, 4-5, 8-9 AND 11-12
     Route: 048
  3. DOXORUBICIN HCL [Suspect]
     Dosage: DAYS 1-4
     Route: 065
  4. DOXORUBICIN HCL [Suspect]
     Indication: MULTIPLE MYELOMA
     Dosage: DAYS 1-4
     Route: 042

REACTIONS (12)
  - TOXICITY TO VARIOUS AGENTS [None]
  - HAEMATOTOXICITY [None]
  - FEBRILE NEUTROPENIA [None]
  - HYPOKALAEMIA [None]
  - PERIPHERAL SENSORY NEUROPATHY [None]
  - NAUSEA [None]
  - HYPONATRAEMIA [None]
  - FATIGUE [None]
  - DIARRHOEA [None]
  - THROMBOCYTOPENIA [None]
  - NEUTROPENIA [None]
  - ANAEMIA [None]
